FAERS Safety Report 7274553-2 (Version None)
Quarter: 2011Q1

REPORT INFORMATION
  Report Type: 
  Country: None (occurrence: None)
  Receive Date: 20110202
  Receipt Date: 20110202
  Transmission Date: 20110831
  Serious: Yes (Other)
  Sender: FDA-Public Use
  Company Number: None

PATIENT
  Age: 44 Year
  Sex: Female
  Weight: 71.6683 kg

DRUGS (7)
  1. IBUPROPHENE [Concomitant]
  2. OMNARIS [Suspect]
     Indication: SINUSITIS
     Dosage: 1 SPRAY IN EACH NOSTRIL 1-2 TIMES PER DAY NASAL
     Route: 045
     Dates: start: 20110128, end: 20110201
  3. PSEUDOEPHEDRINE HYDROCHLORIDE [Concomitant]
  4. XYLOMETAZOLIN/IPRATROPIUMBROMID NASAL SPRAY [Concomitant]
  5. NORWAY [Concomitant]
  6. LEVOXYL [Concomitant]
  7. CLARITRYMYC [Concomitant]

REACTIONS (12)
  - CONFUSIONAL STATE [None]
  - FEELING ABNORMAL [None]
  - MANIA [None]
  - NAUSEA [None]
  - PHOTOPHOBIA [None]
  - VISUAL IMPAIRMENT [None]
  - MIGRAINE [None]
  - HEADACHE [None]
  - VISUAL ACUITY REDUCED [None]
  - DISORIENTATION [None]
  - AGGRESSION [None]
  - INSOMNIA [None]
